FAERS Safety Report 4524964-0 (Version None)
Quarter: 2004Q4

REPORT INFORMATION
  Report Type: 
  Country: None (occurrence: None)
  Receive Date: 20041117
  Receipt Date: 20030610
  Transmission Date: 20050328
  Serious: Yes (Other)
  Sender: FDA-Public Use
  Company Number: C2003-1434.01

PATIENT
  Age: 47 Year
  Sex: Female

DRUGS (1)
  1. CLOZAPINE [Suspect]
     Indication: SCHIZOAFFECTIVE DISORDER
     Dosage: 100MG QAM, 200MG AT 2PM, 300MG QHS, ORAL
     Route: 048
     Dates: start: 20030513

REACTIONS (1)
  - WHITE BLOOD CELL COUNT INCREASED [None]
